FAERS Safety Report 4427629-9 (Version None)
Quarter: 2004Q3

REPORT INFORMATION
  Report Type: 
  Country: None (occurrence: None)
  Receive Date: 20040812
  Receipt Date: 20040609
  Transmission Date: 20050211
  Serious: Yes (Hospitalization)
  Sender: FDA-Public Use
  Company Number: USA-2004-0015602

PATIENT
  Age: 80 Year
  Sex: Male

DRUGS (8)
  1. CEFDITOREN PIVOXIL (SIMILAR TO NDA 21-222) (CEFDITOREN PIVOXIL) [Suspect]
     Indication: PNEUMONIA BACTERIAL
     Dosage: 200 MG, DAILY, ORAL
     Route: 048
     Dates: start: 20040522, end: 20040601
  2. ROCEPHIN [Concomitant]
  3. CLARITHROMYCIN [Concomitant]
  4. TIENAM (CILASTATIN, IMIPENEM) [Concomitant]
  5. TAZOCIN (TAZOBACTAM SODIUM, PIPERACILLIN SODIUM) [Concomitant]
  6. ERYTHROCIN [Concomitant]
  7. ITRACONAZOLE [Concomitant]
  8. SOLU-MEDROL [Concomitant]

REACTIONS (3)
  - LUNG DISORDER [None]
  - PNEUMONIA BACTERIAL [None]
  - THERAPEUTIC RESPONSE DECREASED [None]
